FAERS Safety Report 6220095-2 (Version None)
Quarter: 2009Q2

REPORT INFORMATION
  Report Type: 
  Country: None (occurrence: None)
  Receive Date: 20090609
  Receipt Date: 20090527
  Transmission Date: 20091009
  Serious: Yes (Hospitalization)
  Sender: FDA-Public Use
  Company Number: US-ELI_LILLY_AND_COMPANY-US200903001011

PATIENT
  Sex: Female

DRUGS (8)
  1. HUMULIN R [Suspect]
     Dosage: 20 U, EACH MORNING
     Dates: start: 20030101
  2. HUMULIN 70/30 [Suspect]
     Dosage: 39 U, EACH MORNING
     Dates: start: 20030101
  3. HUMULIN 70/30 [Suspect]
     Dosage: 42 U, UNK
  4. HUMULIN 70/30 [Suspect]
     Dosage: 32 U, UNK
  5. HUMULIN 70/30 [Suspect]
     Dosage: 36 U, UNK
  6. HUMULIN 70/30 [Suspect]
     Dosage: 38 U, UNK
  7. HUMULIN 70/30 [Suspect]
     Dosage: 38.5 U, UNK
  8. VITAMINS [Concomitant]

REACTIONS (10)
  - BLOOD GLUCOSE DECREASED [None]
  - BLOOD GLUCOSE INCREASED [None]
  - CYSTITIS [None]
  - DRUG INEFFECTIVE [None]
  - DRUG INTOLERANCE [None]
  - DYSPEPSIA [None]
  - FALL [None]
  - HEADACHE [None]
  - HIP FRACTURE [None]
  - MULTIPLE ALLERGIES [None]
